FAERS Safety Report 15781527 (Version 2)
Quarter: 2019Q1

REPORT INFORMATION
  Report Type: Spontaneous
  Country: US (occurrence: US)
  Receive Date: 20190102
  Receipt Date: 20190111
  Transmission Date: 20190417
  Serious: No
  Sender: FDA-Public Use
  Company Number: US-APPCO PHARMA LLC-2060752

PATIENT
  Age: 18 Year
  Sex: Male
  Weight: 52.27 kg

DRUGS (1)
  1. CYPROHEPTADINE. [Suspect]
     Active Substance: CYPROHEPTADINE
     Indication: CYCLIC VOMITING SYNDROME
     Route: 048
     Dates: start: 20181014, end: 20181213

REACTIONS (3)
  - Swelling [Recovered/Resolved]
  - Eczema [Recovered/Resolved]
  - Rash [Recovered/Resolved]
